FAERS Safety Report 6584273-5 (Version None)
Quarter: 2010Q1

REPORT INFORMATION
  Report Type: 
  Country: None (occurrence: None)
  Receive Date: 20100216
  Receipt Date: 20100202
  Transmission Date: 20100710
  Serious: Yes (Hospitalization, Other)
  Sender: FDA-Public Use
  Company Number: AU-BAUSCH-2010BL000644

PATIENT

DRUGS (1)
  1. FLUOCINOLONE ACETONIDE INTRAVITREAL IMPLANT(MASKED) [Suspect]
     Indication: UVEITIS

REACTIONS (7)
  - BLINDNESS [None]
  - DEVICE BREAKAGE [None]
  - DEVICE DISLOCATION [None]
  - MACULOPATHY [None]
  - MEDICAL DEVICE COMPLICATION [None]
  - RETINAL TEAR [None]
  - VITREOUS FLOATERS [None]
